FAERS Safety Report 6563927-0 (Version None)
Quarter: 2010Q1

REPORT INFORMATION
  Report Type: 
  Country: None (occurrence: None)
  Receive Date: 20100131
  Receipt Date: 20100119
  Transmission Date: 20100710
  Serious: Yes (Death)
  Sender: FDA-Public Use
  Company Number: US-JNJFOC-20091207798

PATIENT
  Sex: Female
  Weight: 67.59 kg

DRUGS (6)
  1. TYLENOL (CAPLET) [Suspect]
  2. TYLENOL (CAPLET) [Suspect]
     Indication: BACK PAIN
  3. NOVOLOG [Concomitant]
     Indication: DIABETES MELLITUS
  4. ZITHROMAX [Concomitant]
     Indication: PHARYNGITIS
  5. FLU VACCINE [Concomitant]
  6. H1N1 VACCINE [Concomitant]

REACTIONS (5)
  - ABDOMINAL DISCOMFORT [None]
  - CARDIAC ARREST [None]
  - DYSPNOEA [None]
  - PRODUCT QUALITY ISSUE [None]
  - VOMITING [None]
